FAERS Safety Report 5268451-3 (Version None)
Quarter: 2007Q1

REPORT INFORMATION
  Report Type: 
  Country: None (occurrence: None)
  Receive Date: 20070315
  Receipt Date: 20070315
  Transmission Date: 20070707
  Serious: Yes (Life-Threatening)
  Sender: FDA-Public Use
  Company Number: None

PATIENT
  Age: 28 Year
  Sex: Female
  Weight: 49.8957 kg

DRUGS (1)
  1. SMZ/TMP [Suspect]
     Indication: SINUSITIS
     Dates: start: 20070119, end: 20070124

REACTIONS (10)
  - BURNING SENSATION [None]
  - DRUG INEFFECTIVE [None]
  - DYSPNOEA [None]
  - ERYTHEMA [None]
  - HALLUCINATION [None]
  - HEADACHE [None]
  - INFLAMMATION [None]
  - PAIN [None]
  - PHARYNGEAL OEDEMA [None]
  - RASH GENERALISED [None]
